FAERS Safety Report 24944590 (Version 2)
Quarter: 2025Q2

REPORT INFORMATION
  Report Type: Spontaneous
  Country: JP (occurrence: JP)
  Receive Date: 20250208
  Receipt Date: 20250401
  Transmission Date: 20250717
  Serious: Yes (Death)
  Sender: UNITED THERAPEUTICS
  Company Number: JP-UNITED THERAPEUTICS-UNT-2025-004519

PATIENT
  Age: 64 Year
  Sex: Female

DRUGS (1)
  1. TYVASO [Suspect]
     Active Substance: TREPROSTINIL
     Indication: Product used for unknown indication
     Dosage: 18 ?G, TID
     Dates: start: 20240312

REACTIONS (2)
  - Influenza [Fatal]
  - Underdose [Unknown]

NARRATIVE: CASE EVENT DATE: 20240312
